FAERS Safety Report 19501716 (Version 1)
Quarter: 2021Q3

REPORT INFORMATION
  Report Type: Spontaneous
  Country: US (occurrence: US)
  Receive Date: 20210707
  Receipt Date: 20210707
  Transmission Date: 20211014
  Serious: Yes (Hospitalization)
  Sender: FDA-Public Use
  Company Number: None

PATIENT
  Age: 72 Year
  Sex: Female
  Weight: 51.3 kg

DRUGS (1)
  1. MONTELUKAST [Suspect]
     Active Substance: MONTELUKAST SODIUM
     Indication: ASTHMA
     Dosage: ?          QUANTITY:1 TABLET(S);?
     Route: 048

REACTIONS (14)
  - Disorientation [None]
  - Insomnia [None]
  - Agitation [None]
  - Disturbance in attention [None]
  - Irritability [None]
  - Somnambulism [None]
  - Hallucination [None]
  - Obsessive-compulsive symptom [None]
  - Aggression [None]
  - Hostility [None]
  - Tremor [None]
  - Anxiety [None]
  - Depression [None]
  - Restlessness [None]

NARRATIVE: CASE EVENT DATE: 20210625
